FAERS Safety Report 8042568-2 (Version None)
Quarter: 2012Q1

REPORT INFORMATION
  Report Type: 
  Country: None (occurrence: None)
  Receive Date: 20120112
  Receipt Date: 20120109
  Transmission Date: 20120608
  Serious: Yes (Hospitalization)
  Sender: FDA-Public Use
  Company Number: FR-PFIZER INC-2012005385

PATIENT
  Age: 35 Year
  Sex: Female

DRUGS (2)
  1. EFFEXOR XR [Suspect]
     Dosage: UNK
     Dates: start: 20111206
  2. ZYPREXA [Suspect]
     Dosage: UNK
     Route: 048
     Dates: start: 20111201

REACTIONS (1)
  - CYTOLYTIC HEPATITIS [None]
